FAERS Safety Report 11240276 (Version 1)
Quarter: 2015Q3

REPORT INFORMATION
  Report Type: Spontaneous
  Country: FI (occurrence: FI)
  Receive Date: 20150706
  Receipt Date: 20150706
  Transmission Date: 20151125
  Serious: Yes (Other)
  Sender: FDA-Public Use
  Company Number: FI-PFIZER INC-2015218979

PATIENT
  Age: 75 Year
  Sex: Male

DRUGS (1)
  1. CHAMPIX [Suspect]
     Active Substance: VARENICLINE TARTRATE
     Dosage: UNK
     Dates: start: 201506

REACTIONS (2)
  - Self injurious behaviour [Unknown]
  - Depression [Unknown]

NARRATIVE: CASE EVENT DATE: 201506
